FAERS Safety Report 22996348 (Version 4)
Quarter: 2024Q1

REPORT INFORMATION
  Report Type: Spontaneous
  Country: US (occurrence: US)
  Receive Date: 20230928
  Receipt Date: 20240105
  Transmission Date: 20240410
  Serious: No
  Sender: FDA-Public Use
  Company Number: US-Blueprint Medicines Corporation-1477

PATIENT
  Age: 48 Year
  Sex: Female

DRUGS (3)
  1. AYVAKIT [Suspect]
     Active Substance: AVAPRITINIB
     Indication: Indolent systemic mastocytosis
     Route: 065
     Dates: start: 20220427
  2. AYVAKIT [Suspect]
     Active Substance: AVAPRITINIB
     Indication: Systemic mastocytosis
     Route: 048
     Dates: start: 20220427
  3. AYVAKIT [Suspect]
     Active Substance: AVAPRITINIB
     Route: 065
     Dates: start: 20220427

REACTIONS (18)
  - Rash [Unknown]
  - Urticaria [Unknown]
  - Nasal congestion [Unknown]
  - Unevaluable event [Unknown]
  - Rhinorrhoea [Unknown]
  - Feeling abnormal [Unknown]
  - Gastrointestinal disorder [Unknown]
  - Bone pain [Unknown]
  - Muscle spasms [Unknown]
  - Sleep apnoea syndrome [Unknown]
  - Nausea [Unknown]
  - Depressed mood [Unknown]
  - Decreased activity [Unknown]
  - Emotional disorder [Unknown]
  - Influenza like illness [Unknown]
  - Asthenia [Unknown]
  - Anxiety [Unknown]
  - Pain [Unknown]

NARRATIVE: CASE EVENT DATE: 20231017
